FAERS Safety Report 12635124 (Version 2)
Quarter: 2016Q3

REPORT INFORMATION
  Report Type: Spontaneous
  Country: US (occurrence: US)
  Receive Date: 20160809
  Receipt Date: 20160831
  Transmission Date: 20161109
  Serious: No
  Sender: FDA-Public Use
  Company Number: US-PFIZER INC-2016337914

PATIENT
  Age: 71 Year
  Sex: Female
  Weight: 73.48 kg

DRUGS (3)
  1. COLESTIPOL HCL [Suspect]
     Active Substance: COLESTIPOL HYDROCHLORIDE
     Indication: BILE OUTPUT DECREASED
     Dosage: THREE TABLETS OF 1 GM TWICE A DAY
     Route: 048
     Dates: start: 20160624, end: 20160707
  2. APRISO [Suspect]
     Active Substance: MESALAMINE
     Indication: COLITIS
  3. APRISO [Suspect]
     Active Substance: MESALAMINE
     Indication: DIVERTICULITIS
     Dosage: .375 MG, CAPSULE, 4 TIMES A DAY
     Route: 048
     Dates: start: 20160624, end: 20160707

REACTIONS (5)
  - Rash macular [Unknown]
  - Insomnia [Unknown]
  - Depressed mood [Unknown]
  - Rash [Not Recovered/Not Resolved]
  - Pruritus [Not Recovered/Not Resolved]

NARRATIVE: CASE EVENT DATE: 201606
